FAERS Safety Report 8555850 (Version 2)
Quarter: 2012Q4

REPORT INFORMATION
  Report Type: 
  Country: US (occurrence: US)
  Receive Date: 20120510
  Receipt Date: 20120905
  Transmission Date: 20130627
  Serious: Yes (Hospitalization)
  Sender: FDA-Public Use
  Company Number: US-BAYER-2012-043309

PATIENT
  Age: 19 Year
  Sex: Female
  Weight: 97.51 kg

DRUGS (3)
  1. YASMIN [Suspect]
     Indication: CONTRACEPTION
     Dosage: UNK
     Dates: start: 200311, end: 2004
  2. AUGMENTIN [Concomitant]
  3. DARVOCET [Concomitant]

REACTIONS (8)
  - Pregnancy on oral contraceptive [Not Recovered/Not Resolved]
  - Cholecystitis [None]
  - Cholecystitis acute [None]
  - Pancreatitis [None]
  - Injury [None]
  - Pain [None]
  - Emotional distress [None]
  - Abdominal pain [None]
